FAERS Safety Report 10155677 (Version 1)
Quarter: 2014Q2

REPORT INFORMATION
  Report Type: Report from Study
  Country: US (occurrence: US)
  Receive Date: 20140506
  Receipt Date: 20140506
  Transmission Date: 20141212
  Serious: Yes (Hospitalization)
  Sender: FDA-Public Use
  Company Number: US-ABBVIE-14P-163-1229891-00

PATIENT
  Age: 65 Year
  Sex: Female
  Weight: 68.1 kg

DRUGS (7)
  1. HUMIRA [Suspect]
     Indication: RHEUMATOID ARTHRITIS
     Dates: start: 2013, end: 201403
  2. LISINOPRIL [Concomitant]
     Indication: BLOOD PRESSURE
  3. METOPROLOL [Concomitant]
     Indication: BLOOD PRESSURE
  4. BYSTOLIC [Concomitant]
     Indication: BLOOD PRESSURE
  5. METHOTREXAT [Concomitant]
     Indication: RHEUMATOID ARTHRITIS
  6. MORPHINE [Concomitant]
     Indication: PAIN
  7. ZOLOFT [Concomitant]
     Indication: ANXIOLYTIC THERAPY

REACTIONS (3)
  - Constipation [Not Recovered/Not Resolved]
  - Sepsis [Recovered/Resolved]
  - Rheumatoid arthritis [Not Recovered/Not Resolved]
